FAERS Safety Report 6406631-1 (Version None)
Quarter: 2009Q4

REPORT INFORMATION
  Report Type: 
  Country: None (occurrence: None)
  Receive Date: 20091014
  Receipt Date: 20090923
  Transmission Date: 20100525
  Serious: Yes (Hospitalization, Other)
  Sender: FDA-Public Use
  Company Number: AUR-APL-2009-00711

PATIENT
  Age: 63 Year
  Sex: Female

DRUGS (3)
  1. AMLODIPINE [Suspect]
  2. TICLOPIDINE HCL [Suspect]
     Dosage: 250MG, BID
  3. ASPIRIN [Suspect]

REACTIONS (1)
  - APLASTIC ANAEMIA [None]
